FAERS Safety Report 22872949 (Version 2)
Quarter: 2024Q2

REPORT INFORMATION
  Report Type: Spontaneous
  Country: US (occurrence: US)
  Receive Date: 20230828
  Receipt Date: 20240522
  Transmission Date: 20240716
  Serious: No
  Sender: FDA-Public Use
  Company Number: US-MAYNE PHARMA-2023MYN000496

PATIENT

DRUGS (1)
  1. FABIOR [Suspect]
     Active Substance: TAZAROTENE
     Indication: Hair growth abnormal
     Dosage: UNK, QD
     Route: 061
     Dates: start: 20230419

REACTIONS (2)
  - Pain [Unknown]
  - Skin burning sensation [Unknown]
